FAERS Safety Report 6538249-4 (Version None)
Quarter: 2010Q1

REPORT INFORMATION
  Report Type: 
  Country: None (occurrence: None)
  Receive Date: 20100114
  Receipt Date: 20100106
  Transmission Date: 20100710
  Serious: No
  Sender: FDA-Public Use
  Company Number: US-B.I. PHARMACEUTICALS,INC./RIDGEFIELD-2009-BP-14734BP

PATIENT
  Weight: 102.06 kg

DRUGS (1)
  1. FLOMAX [Suspect]
     Dosage: 0.4 MG
     Route: 048
     Dates: start: 20090216

REACTIONS (4)
  - HOT FLUSH [None]
  - HYPOAESTHESIA [None]
  - ONYCHOMYCOSIS [None]
  - PERIPHERAL NERVE INJURY [None]
